FAERS Safety Report 5194632-3 (Version None)
Quarter: 2006Q4

REPORT INFORMATION
  Report Type: 
  Country: None (occurrence: None)
  Receive Date: 20061229
  Receipt Date: 20060510
  Transmission Date: 20070319
  Serious: Yes (Life-Threatening, Hospitalization)
  Sender: FDA-Public Use
  Company Number: US-BAYER-200613083BWH

PATIENT
  Age: 53 Year
  Sex: Male
  Weight: 65 kg

DRUGS (10)
  1. SORAFENIB [Suspect]
     Indication: METASTATIC RENAL CELL CARCINOMA
     Dosage: TOTAL DAILY DOSE: 800 MG  UNIT DOSE: 200 MG
     Route: 048
     Dates: start: 20050822
  2. LISINOPRIL [Concomitant]
     Indication: HYPERTENSION
     Route: 048
     Dates: start: 20030101
  3. NORVASC [Concomitant]
     Indication: HYPERTENSION
     Route: 048
     Dates: start: 20040101
  4. HYDROCHLOROTHIAZIDE [Concomitant]
     Indication: HYPERTENSION
     Route: 048
     Dates: start: 20020101
  5. OXYCODONE HCL [Concomitant]
     Indication: CANCER PAIN
     Route: 048
     Dates: start: 20050501
  6. ZOMETA [Concomitant]
     Indication: METASTASES TO BONE
     Route: 042
     Dates: start: 20050501
  7. NEXIUM [Concomitant]
     Indication: PEPTIC ULCER
     Route: 048
     Dates: start: 20050914
  8. BACLOFEN [Concomitant]
     Indication: BACK PAIN
     Route: 048
     Dates: start: 20060506
  9. FERROUS GLUCONATE [Concomitant]
     Indication: ANAEMIA
     Route: 048
     Dates: start: 20060301
  10. SENOKOT [Concomitant]

REACTIONS (4)
  - ABDOMINAL PAIN [None]
  - DIZZINESS [None]
  - DUODENAL ULCER [None]
  - DUODENAL ULCER HAEMORRHAGE [None]
